FAERS Safety Report 5583526-7 (Version None)
Quarter: 2008Q1

REPORT INFORMATION
  Report Type: 
  Country: None (occurrence: None)
  Receive Date: 20080107
  Receipt Date: 20071212
  Transmission Date: 20080703
  Serious: No
  Sender: FDA-Public Use
  Company Number: US-BOEHRINGER INGELHEIM PHARMACEUTICALS, INC.-2007-BP-24910BP

PATIENT
  Age: 59 Year
  Sex: Male

DRUGS (8)
  1. MIRAPEX [Suspect]
     Indication: RESTLESS LEGS SYNDROME
     Route: 048
     Dates: start: 20020101
  2. GABAPENTIN [Concomitant]
  3. NORVASC [Concomitant]
  4. ACCOLATE [Concomitant]
  5. ALLEGRA [Concomitant]
  6. SEREVENT [Concomitant]
  7. PULMICORT [Concomitant]
  8. VICODIN [Concomitant]

REACTIONS (3)
  - DYSKINESIA [None]
  - PAIN IN EXTREMITY [None]
  - RESTLESS LEGS SYNDROME [None]
